FAERS Safety Report 18998942 (Version 2)
Quarter: 2021Q2

REPORT INFORMATION
  Report Type: Spontaneous
  Country: US (occurrence: US)
  Receive Date: 20210312
  Receipt Date: 20210409
  Transmission Date: 20210717
  Serious: Yes (Life-Threatening, Disabling, Other)
  Sender: FDA-Public Use
  Company Number: US-VIFOR (INTERNATIONAL) INC.-VIT-2021-02347

PATIENT
  Age: 83 Year
  Sex: Female
  Weight: 84 kg

DRUGS (25)
  1. VENOFER [Suspect]
     Active Substance: IRON SUCROSE
     Route: 040
     Dates: start: 20210206
  2. EZETIMIBE. [Concomitant]
     Active Substance: EZETIMIBE
     Route: 048
  3. PROAIR HFA [Concomitant]
     Active Substance: ALBUTEROL SULFATE
     Indication: WHEEZING
     Dosage: 2 PUFF INHALER EVERY SIX HOURS AS NEEDED
  4. VENOFER [Suspect]
     Active Substance: IRON SUCROSE
     Route: 040
     Dates: start: 20210209
  5. SENNA [Concomitant]
     Active Substance: SENNA LEAF\SENNOSIDES\SENNOSIDES A AND B
     Dosage: 2 CAPSULES EVERY NIGHT AS NEEDED
  6. RENVELA [Concomitant]
     Active Substance: SEVELAMER CARBONATE
     Indication: PAIN
  7. ANASTROZOLE. [Concomitant]
     Active Substance: ANASTROZOLE
  8. PROTONIX [Concomitant]
     Active Substance: PANTOPRAZOLE SODIUM
     Route: 048
  9. RENVELA [Concomitant]
     Active Substance: SEVELAMER CARBONATE
     Indication: PAIN
     Route: 048
  10. OXAYDO [Concomitant]
     Active Substance: OXYCODONE HYDROCHLORIDE
     Indication: PAIN
     Route: 048
  11. RENVELA [Concomitant]
     Active Substance: SEVELAMER CARBONATE
     Indication: PAIN
  12. SENNA PLUS [Concomitant]
     Active Substance: DOCUSATE SODIUM\SENNOSIDES\SENNOSIDES A AND B
     Indication: DIARRHOEA
     Dosage: 2 TABLETS BY MOUTH ONE A DAY
     Route: 048
  13. VITAMIN D3 [Concomitant]
     Active Substance: CHOLECALCIFEROL
     Route: 048
  14. CARVEDILOL. [Concomitant]
     Active Substance: CARVEDILOL
     Route: 048
  15. ELIQUIS [Concomitant]
     Active Substance: APIXABAN
     Route: 048
  16. LANTUS SOLOSTAR [Concomitant]
     Active Substance: INSULIN GLARGINE
     Route: 058
  17. LEVOTHYROXINE. [Concomitant]
     Active Substance: LEVOTHYROXINE
     Route: 048
  18. RENVELA [Concomitant]
     Active Substance: SEVELAMER CARBONATE
     Indication: PAIN
  19. VENOFER [Suspect]
     Active Substance: IRON SUCROSE
     Indication: IRON DEFICIENCY
     Route: 040
     Dates: start: 20210204, end: 20210223
  20. ASPRIN [Concomitant]
     Active Substance: ASPIRIN
     Route: 048
  21. FERROUS SULFATE. [Concomitant]
     Active Substance: FERROUS SULFATE
     Route: 048
  22. PROAIR HFA [Concomitant]
     Active Substance: ALBUTEROL SULFATE
     Indication: DYSPNOEA
  23. MIRCERA [Suspect]
     Active Substance: METHOXY POLYETHYLENE GLYCOL-EPOETIN BETA
     Indication: NEPHROGENIC ANAEMIA
     Route: 040
     Dates: start: 20210209, end: 20210209
  24. OMEPRAZOLE. [Concomitant]
     Active Substance: OMEPRAZOLE
     Route: 048
  25. RENVELA [Concomitant]
     Active Substance: SEVELAMER CARBONATE
     Indication: PAIN

REACTIONS (7)
  - Blood pressure decreased [Recovered/Resolved]
  - Anaphylactic reaction [Recovered/Resolved]
  - Chest discomfort [Recovered/Resolved]
  - Heart rate decreased [Recovered/Resolved]
  - Dyspnoea [Recovered/Resolved]
  - Angioedema [Recovered/Resolved]
  - Tongue disorder [Recovered/Resolved]

NARRATIVE: CASE EVENT DATE: 20210209
